FAERS Safety Report 7590236-3 (Version None)
Quarter: 2011Q3

REPORT INFORMATION
  Report Type: 
  Country: None (occurrence: None)
  Receive Date: 20110705
  Receipt Date: 20110630
  Transmission Date: 20111222
  Serious: Yes (Life-Threatening, Hospitalization)
  Sender: FDA-Public Use
  Company Number: US-ASTRAZENECA-2011SE36803

PATIENT
  Age: 21724 Day
  Sex: Female
  Weight: 89.3 kg

DRUGS (21)
  1. LOSARTAN POTASSIUM [Concomitant]
  2. VANDETANIB [Suspect]
     Indication: GLIOBLASTOMA
     Route: 048
     Dates: start: 20110111, end: 20110613
  3. CLONAZEPAM [Concomitant]
  4. DAPSONE [Concomitant]
  5. DILTIAZEM CD [Concomitant]
  6. DIPHENHYDRAMINE HCL [Concomitant]
     Route: 048
  7. GLUCOSAMINE [Concomitant]
  8. RADIATION THERAPY [Suspect]
     Indication: GLIOBLASTOMA
  9. LANSOPRAZOLE [Concomitant]
  10. DEXAMETHASONE [Concomitant]
  11. TEMODAR [Suspect]
     Indication: GLIOBLASTOMA
     Route: 048
     Dates: start: 20110517
  12. CALCIUM CARBONATE [Concomitant]
  13. ACETAMINOPHEN [Concomitant]
  14. ALBUTEROL-IPRATROPIUM NEBULIZER [Concomitant]
  15. EZETIMIBE [Concomitant]
  16. DECADRON [Suspect]
  17. ASPIRIN [Concomitant]
  18. FENOFIBRATE [Concomitant]
  19. KCL IR [Concomitant]
  20. MULTI-VITAMIN [Concomitant]
  21. DULOZETINE [Concomitant]

REACTIONS (4)
  - DYSPNOEA [None]
  - MYOPATHY [None]
  - ANAEMIA [None]
  - DEEP VEIN THROMBOSIS [None]
